FAERS Safety Report 7191564-6 (Version None)
Quarter: 2010Q4

REPORT INFORMATION
  Report Type: 
  Country: None (occurrence: None)
  Receive Date: 20101223
  Receipt Date: 20101215
  Transmission Date: 20110411
  Serious: Yes (Other)
  Sender: FDA-Public Use
  Company Number: JP-ROCHE-749138

PATIENT
  Age: 77 Year
  Sex: Male

DRUGS (10)
  1. AVASTIN [Suspect]
     Indication: LARGE INTESTINE CARCINOMA
     Route: 041
     Dates: start: 20101025, end: 20101025
  2. AVASTIN [Suspect]
     Route: 041
     Dates: start: 20101115, end: 20101115
  3. FLUOROURACIL [Suspect]
     Indication: LARGE INTESTINE CARCINOMA
     Dosage: FORM: INTRAVENOUS BOLUS.
     Route: 042
     Dates: start: 20101025, end: 20101025
  4. FLUOROURACIL [Suspect]
     Dosage: START DATE REPORTED AS: 25 OCTOBER 2010, FORM: INTRAVENOUS DRIP.
     Route: 042
     Dates: end: 20101001
  5. FLUOROURACIL [Suspect]
     Dosage: FORM: INTRAVENOUS BOLUS
     Route: 042
     Dates: start: 20101115, end: 20101115
  6. FLUOROURACIL [Suspect]
     Dosage: ROUTE: INTRAVENOUS DRIP
     Route: 042
     Dates: start: 20101115, end: 20101101
  7. LEVOFOLINATE [Suspect]
     Indication: LARGE INTESTINE CARCINOMA
     Route: 041
     Dates: start: 20101025, end: 20101025
  8. LEVOFOLINATE [Suspect]
     Route: 041
     Dates: start: 20101115, end: 20101115
  9. TOPOTECAN [Suspect]
     Indication: LARGE INTESTINE CARCINOMA
     Route: 041
     Dates: start: 20101025, end: 20101025
  10. TOPOTECAN [Suspect]
     Route: 041
     Dates: start: 20101115, end: 20101115

REACTIONS (1)
  - INTERSTITIAL LUNG DISEASE [None]
